FAERS Safety Report 6543510-3 (Version None)
Quarter: 2010Q1

REPORT INFORMATION
  Report Type: 
  Country: None (occurrence: None)
  Receive Date: 20100120
  Receipt Date: 20100114
  Transmission Date: 20100710
  Serious: Yes (Hospitalization)
  Sender: FDA-Public Use
  Company Number: B0625598A

PATIENT
  Sex: Female

DRUGS (10)
  1. AUGMENTIN [Suspect]
     Route: 048
     Dates: start: 20090123, end: 20090207
  2. ROCEPHIN [Suspect]
     Route: 048
     Dates: start: 20090208, end: 20090226
  3. LERCAN [Suspect]
     Dosage: 10MG PER DAY
     Route: 048
     Dates: end: 20090226
  4. FORLAX [Suspect]
     Indication: GASTRIC DISORDER
     Dosage: 10G PER DAY
     Route: 048
     Dates: end: 20090226
  5. THERALENE [Suspect]
     Indication: INSOMNIA
     Dosage: 10DROP PER DAY
     Route: 048
  6. STABLON [Suspect]
     Indication: DEPRESSION
     Dosage: 12.5MG TWICE PER DAY
     Route: 048
     Dates: start: 20090213, end: 20090226
  7. SECTRAL [Concomitant]
     Dosage: 200MG PER DAY
     Route: 048
  8. BIPRETERAX [Concomitant]
     Dosage: 1UNIT PER DAY
     Route: 048
     Dates: end: 20090226
  9. DIANTALVIC [Concomitant]
     Dosage: 4UNIT PER DAY
     Route: 048
     Dates: end: 20090226
  10. DEBRIDAT [Concomitant]
     Indication: GASTRIC DISORDER
     Dosage: 3UNIT PER DAY
     Route: 048
     Dates: end: 20090226

REACTIONS (3)
  - BACTERIAL TEST POSITIVE [None]
  - DIARRHOEA [None]
  - GENERAL PHYSICAL HEALTH DETERIORATION [None]
